FAERS Safety Report 19746141 (Version 2)
Quarter: 2021Q3

REPORT INFORMATION
  Report Type: Report from Study
  Country: US (occurrence: US)
  Receive Date: 20210825
  Receipt Date: 20210903
  Transmission Date: 20211014
  Serious: Yes (Hospitalization, Other)
  Sender: FDA-Public Use
  Company Number: US-TAKEDA-2021TUS052134

PATIENT
  Age: 7 Year
  Sex: Female

DRUGS (15)
  1. TEDUGLUTIDE [Suspect]
     Active Substance: TEDUGLUTIDE
     Dosage: 1.045 MILLIGRAM, QD
     Route: 065
     Dates: start: 20200821
  2. AQUADEKS [Concomitant]
     Active Substance: MINERALS\VITAMINS
     Indication: VITAMIN SUPPLEMENTATION
     Dosage: 1 MILLILITER, QD
     Route: 048
     Dates: start: 20130606
  3. TEDUGLUTIDE [Suspect]
     Active Substance: TEDUGLUTIDE
     Indication: SHORT-BOWEL SYNDROME
     Dosage: 0.95 MILLIGRAM, QD
     Route: 065
     Dates: start: 20200511, end: 20200821
  4. TEDUGLUTIDE [Suspect]
     Active Substance: TEDUGLUTIDE
     Indication: SHORT-BOWEL SYNDROME
     Dosage: 0.95 MILLIGRAM, QD
     Route: 065
     Dates: start: 20200511, end: 20200821
  5. TEDUGLUTIDE [Suspect]
     Active Substance: TEDUGLUTIDE
     Indication: SHORT-BOWEL SYNDROME
     Dosage: 0.95 MILLIGRAM, QD
     Route: 065
     Dates: start: 20200511, end: 20200821
  6. TEDUGLUTIDE [Suspect]
     Active Substance: TEDUGLUTIDE
     Dosage: 1.045 MILLIGRAM, QD
     Route: 065
     Dates: start: 20200821
  7. TEDUGLUTIDE [Suspect]
     Active Substance: TEDUGLUTIDE
     Dosage: 1.045 MILLIGRAM, QD
     Route: 065
     Dates: start: 20200821
  8. SULFATRIM PEDIATRIC [Concomitant]
     Indication: PROPHYLAXIS
     Dosage: 65 MILLIGRAM, BID
     Route: 050
     Dates: start: 20151120
  9. TEDUGLUTIDE [Suspect]
     Active Substance: TEDUGLUTIDE
     Indication: SHORT-BOWEL SYNDROME
     Dosage: 0.95 MILLIGRAM, QD
     Route: 065
     Dates: start: 20200511, end: 20200821
  10. TEDUGLUTIDE [Suspect]
     Active Substance: TEDUGLUTIDE
     Dosage: 1.045 MILLIGRAM, QD
     Route: 065
     Dates: start: 20200821
  11. ACIDOPHILUS PROBIOTIC BLEND [Concomitant]
     Indication: GASTROINTESTINAL DISORDER
     Dosage: 1 DOSAGE FORM, QD
     Route: 048
     Dates: start: 20140328
  12. CHOLESTYRAMINE. [Concomitant]
     Active Substance: CHOLESTYRAMINE
     Indication: DIARRHOEA
     Dosage: 0.50 TSP
     Route: 050
     Dates: start: 20151015
  13. METRONIDAZOLE. [Concomitant]
     Active Substance: METRONIDAZOLE
     Indication: PROPHYLAXIS
     Dosage: 125 MILLIGRAM, BID
     Route: 050
     Dates: start: 20151120
  14. VANCOMYCIN [Concomitant]
     Active Substance: VANCOMYCIN
     Indication: VASCULAR DEVICE INFECTION
     Dosage: 370 MILLIGRAM, TID
     Route: 042
     Dates: start: 20200309, end: 20200323
  15. LOPERAMIDE HCL [Concomitant]
     Active Substance: LOPERAMIDE HYDROCHLORIDE
     Indication: DIARRHOEA
     Dosage: 1 MILLIGRAM, TID
     Route: 050
     Dates: start: 20140801

REACTIONS (1)
  - Vascular device infection [Recovered/Resolved]

NARRATIVE: CASE EVENT DATE: 20200309
